FAERS Safety Report 10421287 (Version 6)
Quarter: 2018Q3

REPORT INFORMATION
  Report Type: Spontaneous
  Country: GB (occurrence: GB)
  Receive Date: 20140831
  Receipt Date: 20180911
  Transmission Date: 20181010
  Serious: Yes (Life-Threatening, Hospitalization, Disabling, Congenital Anomaly, Other)
  Sender: FDA-Public Use
  Company Number: GB-AUROBINDO-AUR-APL-2013-07872

PATIENT
  Age: 0 Year
  Sex: Female
  Weight: 2.2 kg

DRUGS (30)
  1. ZIDOVUDINE CAPSULES 100MG [Suspect]
     Active Substance: ZIDOVUDINE
     Indication: HIV INFECTION
     Dosage: UNK
     Route: 064
  2. APTIVUS [Suspect]
     Active Substance: TIPRANAVIR
     Indication: HIV INFECTION
     Dosage: 500 MILLIGRAM, TWO TIMES A DAY
     Route: 064
     Dates: start: 20060905, end: 20081023
  3. INTELENCE [Suspect]
     Active Substance: ETRAVIRINE
     Dosage: 500 MG,TWO TIMES A DAY,
     Route: 064
  4. INTELENCE [Suspect]
     Active Substance: ETRAVIRINE
     Indication: ANTIRETROVIRAL THERAPY
     Dosage: 500 MILLIGRAM, ONCE A DAY
     Route: 064
     Dates: start: 20081023
  5. ISENTRESS [Suspect]
     Active Substance: RALTEGRAVIR POTASSIUM
     Indication: HIV INFECTION
     Dosage: 400 MILLIGRAM, TWO TIMES A DAY
     Route: 064
     Dates: start: 20081023, end: 20090221
  6. TRUVADA [Suspect]
     Active Substance: EMTRICITABINE\TENOFOVIR DISOPROXIL FUMARATE
     Indication: HIV INFECTION
     Dosage: 32 DOSAGE FORM
     Route: 064
  7. APTIVUS [Suspect]
     Active Substance: TIPRANAVIR
     Indication: HIV INFECTION
     Dosage: 500 MILLIGRAM, ONCE A DAY
     Route: 064
     Dates: start: 20060905, end: 20081023
  8. APTIVUS [Suspect]
     Active Substance: TIPRANAVIR
     Dosage: UNK
     Route: 064
     Dates: start: 20070605, end: 200810
  9. NOVORAPID [Concomitant]
     Active Substance: INSULIN ASPART
     Indication: PRODUCT USED FOR UNKNOWN INDICATION
     Dosage: 200 MILLIGRAM, ONCE A DAY
     Route: 064
  10. PREZISTA [Suspect]
     Active Substance: DARUNAVIR ETHANOLATE
     Indication: HIV INFECTION
  11. INTELENCE [Suspect]
     Active Substance: ETRAVIRINE
     Dosage: 200 MG,TWO TIMES A DAY,
     Route: 064
     Dates: end: 20081023
  12. NORVIR [Suspect]
     Active Substance: RITONAVIR
     Indication: HIV INFECTION
     Dosage: UNK
     Route: 064
     Dates: start: 20060905
  13. ZIDOVUDINE CAPSULES 100MG [Suspect]
     Active Substance: ZIDOVUDINE
     Indication: ANTIVIRAL PROPHYLAXIS
     Dosage: UNK UNK,UNK,
     Route: 064
     Dates: start: 20070605, end: 20081023
  14. ISENTRESS [Suspect]
     Active Substance: RALTEGRAVIR POTASSIUM
     Indication: HIV INFECTION
     Dosage: 800 MG,ONCE A DAY,
     Route: 064
  15. NORVIR [Suspect]
     Active Substance: RITONAVIR
     Dosage: 100 MILLIGRAM
     Route: 064
     Dates: start: 20081023
  16. INSULIN [Concomitant]
     Active Substance: INSULIN NOS
     Indication: GESTATIONAL DIABETES
     Dosage: UNK
     Route: 064
  17. OXYGEN. [Concomitant]
     Active Substance: OXYGEN
     Indication: PRODUCT USED FOR UNKNOWN INDICATION
     Dosage: UNK
     Route: 064
  18. ENFUVIRTIDE. [Concomitant]
     Active Substance: ENFUVIRTIDE
     Indication: PRODUCT USED FOR UNKNOWN INDICATION
     Dosage: UNK
     Route: 064
  19. PREZISTA [Suspect]
     Active Substance: DARUNAVIR ETHANOLATE
     Indication: HIV INFECTION
     Dosage: UNK
     Route: 064
     Dates: start: 20081023
  20. INTELENCE [Suspect]
     Active Substance: ETRAVIRINE
     Indication: HIV INFECTION
     Dosage: 1000 MILLIGRAM, ONCE A DAY
     Route: 064
     Dates: start: 20081023
  21. INTELENCE [Suspect]
     Active Substance: ETRAVIRINE
     Dosage: 400 MG,ONCE A DAY,
     Route: 064
  22. ISENTRESS [Suspect]
     Active Substance: RALTEGRAVIR POTASSIUM
     Dosage: 200 MG,TWO TIMES A DAY,
     Route: 064
  23. NORVIR [Suspect]
     Active Substance: RITONAVIR
     Dosage: 200 MG,ONCE A DAY,
     Route: 064
     Dates: start: 20081023
  24. NORVIR [Suspect]
     Active Substance: RITONAVIR
     Indication: HIV INFECTION
     Dosage: 200 MILLIGRAM, ONCE A DAY
     Route: 064
     Dates: start: 20060905, end: 20081022
  25. TRUVADA [Suspect]
     Active Substance: EMTRICITABINE\TENOFOVIR DISOPROXIL FUMARATE
     Indication: HIV INFECTION
     Dosage: UNK
     Route: 064
     Dates: start: 20070605, end: 20081023
  26. NOVORAPID [Concomitant]
     Active Substance: INSULIN ASPART
     Indication: GESTATIONAL DIABETES
     Dosage: UNK
     Route: 064
  27. NITROUS OXIDE. [Concomitant]
     Active Substance: NITROUS OXIDE
     Indication: PRODUCT USED FOR UNKNOWN INDICATION
     Dosage: UNK
     Route: 064
  28. NORVIR [Suspect]
     Active Substance: RITONAVIR
     Dosage: 100 MG,TWO TIMES A DAY,
     Route: 064
     Dates: start: 20060906, end: 20081023
  29. NORVIR [Suspect]
     Active Substance: RITONAVIR
     Dosage: 400 MG,ONCE A DAY,
     Route: 064
  30. PREDNISOLONE. [Concomitant]
     Active Substance: PREDNISOLONE
     Indication: PRODUCT USED FOR UNKNOWN INDICATION
     Dosage: 25 MILLIGRAM
     Route: 064

REACTIONS (31)
  - Meconium stain [Recovered/Resolved with Sequelae]
  - Musculoskeletal discomfort [Recovered/Resolved with Sequelae]
  - Lipodystrophy acquired [Not Recovered/Not Resolved]
  - Congenital generalised lipodystrophy [Unknown]
  - Genitalia external ambiguous [Recovered/Resolved with Sequelae]
  - Gastrointestinal disorder congenital [Recovered/Resolved]
  - Sepsis neonatal [Recovered/Resolved]
  - Spine malformation [Recovered/Resolved with Sequelae]
  - Foetal exposure during pregnancy [Recovered/Resolved]
  - Musculoskeletal deformity [Recovered/Resolved with Sequelae]
  - Congenital ectopic bladder [Unknown]
  - Exomphalos [Recovered/Resolved with Sequelae]
  - Erythema [Recovered/Resolved]
  - Congenital anomaly [Unknown]
  - Congenital genital malformation [Recovered/Resolved with Sequelae]
  - Fibrosis [Unknown]
  - Tethered cord syndrome [Recovered/Resolved with Sequelae]
  - Bladder agenesis [Recovered/Resolved with Sequelae]
  - Gastrointestinal malformation [Unknown]
  - Neural tube defect [Unknown]
  - Meningomyelocele [Recovered/Resolved with Sequelae]
  - Blood iron decreased [Recovered/Resolved]
  - Cloacal exstrophy [Recovered/Resolved with Sequelae]
  - Congenital musculoskeletal anomaly [Recovered/Resolved]
  - Aspartate aminotransferase increased [Unknown]
  - Umbilical cord abnormality [Recovered/Resolved with Sequelae]
  - Caudal regression syndrome [Recovered/Resolved with Sequelae]
  - Anal atresia [Recovered/Resolved with Sequelae]
  - Premature baby [Recovered/Resolved]
  - Spina bifida [Unknown]
  - Anencephaly [Unknown]

NARRATIVE: CASE EVENT DATE: 20080728
